FAERS Safety Report 16320650 (Version 1)
Quarter: 2019Q2

REPORT INFORMATION
  Report Type: Spontaneous
  Country: GR (occurrence: GR)
  Receive Date: 20190516
  Receipt Date: 20190516
  Transmission Date: 20190711
  Serious: Yes (Death, Other)
  Sender: FDA-Public Use
  Company Number: GR-MYLANLABS-2019M1045647

PATIENT
  Age: 32 Year
  Sex: Female
  Weight: 110 kg

DRUGS (4)
  1. FENTANYL. [Suspect]
     Active Substance: FENTANYL
     Indication: ANAESTHESIA
     Dosage: 100 MICROGRAM
     Route: 065
  2. DORMIXAL [Concomitant]
     Indication: ANAESTHESIA
     Dosage: 5 MILLIGRAM
  3. PROPOFOL. [Concomitant]
     Active Substance: PROPOFOL
     Indication: ANAESTHESIA
     Dosage: 140 MILLIGRAM
  4. ESMERON [Concomitant]
     Active Substance: ROCURONIUM BROMIDE
     Dosage: 80 MILLIGRAM

REACTIONS (4)
  - PCO2 decreased [Fatal]
  - Hypotension [Fatal]
  - Pulmonary embolism [Fatal]
  - Oxygen saturation decreased [Fatal]
